FAERS Safety Report 24565315 (Version 1)
Quarter: 2024Q4

REPORT INFORMATION
  Report Type: Spontaneous
  Country: US (occurrence: None)
  Receive Date: 20241029
  Receipt Date: 20241029
  Transmission Date: 20250115
  Serious: Yes (Disabling, Other)
  Sender: Public
  Company Number: None

PATIENT
  Age: 66 Year
  Sex: Female
  Weight: 72 kg

DRUGS (10)
  1. TALTZ [Suspect]
     Active Substance: IXEKIZUMAB
     Indication: Psoriasis
     Dosage: OTHER QUANTITY : 2 INJECTION(S);?OTHER FREQUENCY : ONE TIME;?
     Route: 058
     Dates: start: 20241004, end: 20241004
  2. TALTZ [Suspect]
     Active Substance: IXEKIZUMAB
     Indication: Psoriatic arthropathy
  3. Methylation Support [Concomitant]
  4. ZINC [Concomitant]
     Active Substance: ZINC
  5. VITAMIN D NOS [Concomitant]
     Active Substance: CHOLECALCIFEROL\ERGOCALCIFEROL
  6. L-GLUTAMINE [Concomitant]
     Active Substance: GLUTAMINE
  7. GLUTATHIONE [Concomitant]
     Active Substance: GLUTATHIONE
  8. MAGNESIUM CITRATE [Concomitant]
     Active Substance: MAGNESIUM CITRATE
  9. Ultra CoQ10 [Concomitant]
  10. NAC [Concomitant]

REACTIONS (7)
  - Dysphonia [None]
  - Migraine [None]
  - Fatigue [None]
  - Muscular weakness [None]
  - Chest discomfort [None]
  - Loss of personal independence in daily activities [None]
  - Therapy cessation [None]

NARRATIVE: CASE EVENT DATE: 20241009
